FAERS Safety Report 4565239-3 (Version None)
Quarter: 2005Q1

REPORT INFORMATION
  Report Type: 
  Country: None (occurrence: None)
  Receive Date: 20050131
  Receipt Date: 20030609
  Transmission Date: 20050727
  Serious: Yes (Other)
  Sender: FDA-Public Use
  Company Number: ES-ROCHE-339690

PATIENT
  Age: 58 Year
  Sex: Male
  Weight: 62 kg

DRUGS (7)
  1. PEG-INTERFERON ALFA 2A (RO 25-8310) [Suspect]
     Indication: HEPATITIS C
     Route: 058
     Dates: start: 20030517, end: 20030520
  2. PEG-INTERFERON ALFA 2A (RO 25-8310) [Suspect]
     Route: 058
     Dates: start: 20031020, end: 20040315
  3. CYCLOSPORINE [Concomitant]
     Route: 048
     Dates: start: 19990615
  4. URSODEOXYCHOLIC ACID [Concomitant]
     Route: 048
  5. ENALAPRIL MALEATE [Concomitant]
     Route: 048
  6. ACETAMINOPHEN [Concomitant]
     Route: 048
  7. NOVONORM [Concomitant]

REACTIONS (3)
  - FACIAL NERVE DISORDER [None]
  - FACIAL PALSY [None]
  - INFLUENZA LIKE ILLNESS [None]
